FAERS Safety Report 16930779 (Version 1)
Quarter: 2019Q4

REPORT INFORMATION
  Report Type: Spontaneous
  Country: FR (occurrence: FR)
  Receive Date: 20191017
  Receipt Date: 20191017
  Transmission Date: 20200122
  Serious: Yes (Other)
  Sender: FDA-Public Use
  Company Number: FR-PFIZER INC-2019445416

PATIENT
  Age: 18 Year
  Sex: Female

DRUGS (9)
  1. HUMIRA [Suspect]
     Active Substance: ADALIMUMAB
     Dosage: UNK
     Route: 058
     Dates: start: 2019
  2. HUMIRA [Suspect]
     Active Substance: ADALIMUMAB
     Dosage: 80 MG, CYCLIC (EVERY 15 DAYS)
     Route: 058
     Dates: start: 2019, end: 2019
  3. HUMIRA [Suspect]
     Active Substance: ADALIMUMAB
     Dosage: 40 MG, CYCLIC (EVERY 15 DAYS)
     Route: 058
     Dates: start: 201907, end: 2019
  4. AMLODIPINE BESILATE [Suspect]
     Active Substance: AMLODIPINE BESYLATE
     Dosage: UNK
  5. COVERAM [Concomitant]
     Active Substance: AMLODIPINE\PERINDOPRIL
     Dosage: UNK (INCREASED POSOLOGY 5/10 TO 10/5)
  6. KARDEGIC [Concomitant]
     Active Substance: ASPIRIN DL-LYSINE
     Dosage: UNK
  7. HUMIRA [Suspect]
     Active Substance: ADALIMUMAB
     Indication: CROHN^S DISEASE
     Dosage: UNK
     Route: 058
     Dates: start: 2014, end: 2018
  8. DIFFU-K [Concomitant]
     Active Substance: POTASSIUM CHLORIDE
     Dosage: UNK
  9. OPTILOVA [Suspect]
     Active Substance: ETHINYL ESTRADIOL\LEVONORGESTREL
     Indication: CONTRACEPTION
     Dosage: UNK
     Dates: end: 201905

REACTIONS (17)
  - Hot flush [Unknown]
  - Proteinuria [Recovered/Resolved]
  - Headache [Recovering/Resolving]
  - Diarrhoea [Unknown]
  - Asthenia [Unknown]
  - Hemiparesis [Unknown]
  - Hyperaldosteronism [Not Recovered/Not Resolved]
  - Aphasia [Unknown]
  - Abdominal pain lower [Unknown]
  - Hypokalaemia [Recovering/Resolving]
  - Hyperkaliuria [Unknown]
  - Glomerular filtration rate increased [Unknown]
  - Ischaemic stroke [Recovering/Resolving]
  - Blood creatinine increased [Unknown]
  - Balance disorder [Recovering/Resolving]
  - Hypertension [Recovering/Resolving]
  - Renin increased [Unknown]

NARRATIVE: CASE EVENT DATE: 2019
